FAERS Safety Report 21247742 (Version 1)
Quarter: 2022Q3

REPORT INFORMATION
  Report Type: Spontaneous
  Country: US (occurrence: None)
  Receive Date: 20220824
  Receipt Date: 20220824
  Transmission Date: 20221026
  Serious: No
  Sender: FDA-Public Use
  Company Number: US-Emmaus Medical, Inc.-EMM202201-000014

PATIENT
  Sex: Female
  Weight: 102.97 kg

DRUGS (1)
  1. ENDARI [Suspect]
     Active Substance: GLUTAMINE
     Indication: Sickle cell anaemia with crisis
     Dosage: 10 G
     Route: 048
     Dates: start: 20180823

REACTIONS (3)
  - Surgery [Unknown]
  - Transfusion [Unknown]
  - Product dose omission issue [Unknown]
